FAERS Safety Report 9799521 (Version 2)
Quarter: 2014Q1

REPORT INFORMATION
  Report Type: Spontaneous
  Country: US (occurrence: US)
  Receive Date: 20140106
  Receipt Date: 20140115
  Transmission Date: 20141002
  Serious: Yes (Other)
  Sender: FDA-Public Use
  Company Number: US-JNJFOC-20140100117

PATIENT
  Age: 58 Year
  Sex: Male

DRUGS (8)
  1. INVOKANA [Suspect]
     Indication: DIABETES MELLITUS
     Route: 048
     Dates: start: 20130702
  2. UROXATRAL [Concomitant]
  3. JANUVIA [Concomitant]
  4. NEXIUM [Concomitant]
  5. METFORMIN [Concomitant]
  6. LORTAB [Concomitant]
  7. ASA [Concomitant]
  8. ACETAMINOPHEN [Concomitant]

REACTIONS (4)
  - Liver function test abnormal [Unknown]
  - Glomerular filtration rate decreased [Unknown]
  - White blood cell count increased [Unknown]
  - Blood glucose increased [Unknown]
